FAERS Safety Report 6398467-5 (Version None)
Quarter: 2009Q4

REPORT INFORMATION
  Report Type: 
  Country: None (occurrence: None)
  Receive Date: 20091013
  Receipt Date: 20091008
  Transmission Date: 20100525
  Serious: Yes (Other)
  Sender: FDA-Public Use
  Company Number: A0810951A

PATIENT
  Age: 75 Year
  Sex: Male

DRUGS (5)
  1. ADVAIR DISKUS 100/50 [Suspect]
     Indication: ASTHMA
     Dosage: 1PUFF TWICE PER DAY
     Route: 055
     Dates: start: 19990101
  2. BLOOD PRESSURE MEDICATION [Concomitant]
  3. ANTI-CHOLESTEROL MEDICATION [Concomitant]
     Indication: BLOOD CHOLESTEROL INCREASED
  4. METFORMIN HYDROCHLORIDE [Concomitant]
  5. MULTIVITAMIN [Concomitant]

REACTIONS (3)
  - ASTHMA [None]
  - ILL-DEFINED DISORDER [None]
  - MIDDLE INSOMNIA [None]
